FAERS Safety Report 10239189 (Version 1)
Quarter: 2014Q2

REPORT INFORMATION
  Report Type: Spontaneous
  Country: US (occurrence: US)
  Receive Date: 20140616
  Receipt Date: 20140616
  Transmission Date: 20141212
  Serious: Yes (Death)
  Sender: FDA-Public Use
  Company Number: US-GLAXOSMITHKLINE-A1077125A

PATIENT
  Age: 62 Year
  Sex: Male

DRUGS (15)
  1. VOTRIENT [Suspect]
     Indication: RENAL CANCER
     Dosage: 200MG PER DAY
     Route: 048
     Dates: start: 20140315
  2. METOLAZONE [Concomitant]
  3. LIDOCAINE [Concomitant]
  4. LORAZEPAM [Concomitant]
  5. DOPAMINE [Concomitant]
  6. PREVACID [Concomitant]
  7. OXYCODONE [Concomitant]
  8. FLOMAX [Concomitant]
  9. MVI [Concomitant]
  10. ALBUTEROL [Concomitant]
  11. ZOFRAN [Concomitant]
  12. FISH OIL [Concomitant]
  13. VOLTAREN [Concomitant]
  14. PROCHLORPERAZINE [Concomitant]
  15. FENOFIBRATE [Concomitant]

REACTIONS (1)
  - Death [Fatal]
